FAERS Safety Report 9108991 (Version 3)
Quarter: 2014Q1

REPORT INFORMATION
  Report Type: Spontaneous
  Country: US (occurrence: US)
  Receive Date: 20130222
  Receipt Date: 20140210
  Transmission Date: 20141002
  Serious: Yes (Death, Life-Threatening, Hospitalization, Disabling, Other)
  Sender: FDA-Public Use
  Company Number: US-MERCK-1302USA009948

PATIENT
  Sex: Female
  Weight: 70.3 kg

DRUGS (17)
  1. JANUVIA [Suspect]
     Indication: TYPE 2 DIABETES MELLITUS
     Dosage: 100 MG, QD
     Route: 048
     Dates: start: 20080609, end: 20100624
  2. JANUVIA [Suspect]
     Indication: DIABETES MELLITUS INADEQUATE CONTROL
  3. JANUMET [Suspect]
     Indication: TYPE 2 DIABETES MELLITUS
     Dosage: 50 MG/1000 MG, BID
     Route: 048
     Dates: start: 20100525, end: 201111
  4. METFORMIN [Concomitant]
     Indication: TYPE 2 DIABETES MELLITUS
  5. HUMULIN [Concomitant]
     Indication: TYPE 2 DIABETES MELLITUS
  6. LEVOTHYROXINE SODIUM [Concomitant]
  7. DIOVAN [Concomitant]
  8. CRESTOR [Concomitant]
  9. CELEBREX [Concomitant]
  10. SOMA [Concomitant]
  11. VICODIN [Concomitant]
  12. AVANDAMET [Concomitant]
     Dosage: UNK
     Dates: end: 20100525
  13. PREDNISONE [Concomitant]
  14. NORVASC [Concomitant]
  15. LUMIGAN [Concomitant]
  16. BIAXIN [Concomitant]
  17. DURAHIST [Concomitant]

REACTIONS (9)
  - Pancreatic carcinoma [Fatal]
  - Pancreaticoduodenectomy [Unknown]
  - Intestinal obstruction [Unknown]
  - Rotator cuff syndrome [Unknown]
  - Hypersensitivity [Unknown]
  - Urticaria [Unknown]
  - Cough [Unknown]
  - Wheezing [Unknown]
  - Dyspnoea [Unknown]
